FAERS Safety Report 14675613 (Version 1)
Quarter: 2018Q1

REPORT INFORMATION
  Report Type: Report from Study
  Country: CA (occurrence: CA)
  Receive Date: 20180323
  Receipt Date: 20180323
  Transmission Date: 20180509
  Serious: Yes (Other)
  Sender: FDA-Public Use
  Company Number: CA-INCYTE CORPORATION-2015IN002132

PATIENT

DRUGS (6)
  1. JAKAVI [Suspect]
     Active Substance: RUXOLITINIB
     Indication: MYELOFIBROSIS
     Dosage: 15 MG, BID
     Route: 048
     Dates: start: 20150315
  2. JAKAVI [Suspect]
     Active Substance: RUXOLITINIB
     Dosage: 5 MG, BID
     Route: 048
  3. JAKAVI [Suspect]
     Active Substance: RUXOLITINIB
     Dosage: ALTERNATING DOSES OF 5 MG BID ONE DAY AND 10 MG QAM AND 5 MG QPM THE NEXT
     Route: 048
  4. JAKAVI [Suspect]
     Active Substance: RUXOLITINIB
     Dosage: 5 MG, BID
     Route: 048
  5. JAKAVI [Suspect]
     Active Substance: RUXOLITINIB
     Dosage: 5 MG, QD
     Route: 048
  6. JAKAVI [Suspect]
     Active Substance: RUXOLITINIB
     Dosage: ALTERNATIVE DOSE OF 10 MG BID AND 15 MG BID
     Route: 048

REACTIONS (10)
  - Peripheral swelling [Recovering/Resolving]
  - Pollakiuria [Unknown]
  - Cystitis [Unknown]
  - Urinary tract infection [Recovered/Resolved]
  - Gait disturbance [Recovering/Resolving]
  - Erythema [Recovering/Resolving]
  - Asthenia [Unknown]
  - Bladder pain [Unknown]
  - Platelet count decreased [Unknown]
  - Pain [Unknown]
